FAERS Safety Report 5652221-8 (Version None)
Quarter: 2008Q1

REPORT INFORMATION
  Report Type: 
  Country: None (occurrence: None)
  Receive Date: 20080304
  Receipt Date: 20080228
  Transmission Date: 20080703
  Serious: Yes (Hospitalization)
  Sender: FDA-Public Use
  Company Number: 2008SP004177

PATIENT
  Age: 19 Year
  Sex: Male

DRUGS (4)
  1. NOXAFIL [Suspect]
     Indication: DRUG USE FOR UNKNOWN INDICATION
     Dosage: 400 MG BID PO
     Route: 048
     Dates: start: 20071107
  2. NEUPOGEN [Suspect]
     Indication: PANCYTOPENIA
     Dosage: SC
     Route: 058
     Dates: start: 20071026
  3. VISTIDE [Suspect]
     Indication: ADENOVIRUS INFECTION
     Dosage: 1 DF TIW IV
     Route: 042
     Dates: start: 20071130
  4. DESFERAL [Suspect]
     Indication: HAEMOCHROMATOSIS
     Dosage: IV
     Route: 042
     Dates: start: 20071204, end: 20071210

REACTIONS (5)
  - DYSPEPSIA [None]
  - HAEMOGLOBIN DECREASED [None]
  - MITRAL VALVE INCOMPETENCE [None]
  - PULMONARY HYPERTENSION [None]
  - RED BLOOD CELL COUNT DECREASED [None]
